FAERS Safety Report 9771207 (Version 1)
Quarter: 2013Q4

REPORT INFORMATION
  Report Type: Spontaneous
  Country: US (occurrence: US)
  Receive Date: 20131218
  Receipt Date: 20131218
  Transmission Date: 20140711
  Serious: No
  Sender: FDA-Public Use
  Company Number: US-PFIZER INC-2013363241

PATIENT
  Sex: Female
  Weight: 72.56 kg

DRUGS (3)
  1. ZOLOFT [Suspect]
     Indication: POSTPARTUM DEPRESSION
     Dosage: 50 MG, DAILY
     Route: 048
     Dates: start: 20131119
  2. PRENATAL VITAMINS [Concomitant]
     Dosage: UNK, 1X/DAY
  3. MIRENA [Concomitant]
     Dosage: UNK
     Route: 015

REACTIONS (2)
  - Oropharyngeal pain [Unknown]
  - Neck pain [Unknown]
